FAERS Safety Report 16907277 (Version 1)
Quarter: 2019Q4

REPORT INFORMATION
  Report Type: Spontaneous
  Country: US (occurrence: US)
  Receive Date: 20191011
  Receipt Date: 20191011
  Transmission Date: 20200122
  Serious: No
  Sender: FDA-Public Use
  Company Number: US-SUNOVION-2019SUN004083

PATIENT

DRUGS (1)
  1. LATUDA [Suspect]
     Active Substance: LURASIDONE HYDROCHLORIDE
     Indication: BIPOLAR DISORDER
     Dosage: 20 MG, EVERY NIGHT WITH 350C
     Route: 048
     Dates: start: 20190916

REACTIONS (3)
  - Rash [Unknown]
  - Pruritus [Unknown]
  - Confusional state [Unknown]

NARRATIVE: CASE EVENT DATE: 20190923
